FAERS Safety Report 4569409-X (Version None)
Quarter: 2005Q1

REPORT INFORMATION
  Report Type: 
  Country: None (occurrence: None)
  Receive Date: 20050203
  Receipt Date: 20050125
  Transmission Date: 20050727
  Serious: Yes (Hospitalization)
  Sender: FDA-Public Use
  Company Number: PHBS2005JP01538

PATIENT
  Age: 0 Day
  Sex: Male
  Weight: 4 kg

DRUGS (3)
  1. DEPAS [Suspect]
     Route: 064
  2. SOLANAX [Concomitant]
     Route: 064
  3. LUDIOMIL [Suspect]
     Route: 064

REACTIONS (4)
  - BLOOD CREATINE PHOSPHOKINASE INCREASED [None]
  - POOR SUCKING REFLEX [None]
  - RHABDOMYOLYSIS [None]
  - SOMNOLENCE [None]
